FAERS Safety Report 10216838 (Version 2)
Quarter: 2016Q1

REPORT INFORMATION
  Report Type: Spontaneous
  Country: US (occurrence: US)
  Receive Date: 20140604
  Receipt Date: 20160314
  Transmission Date: 20160525
  Serious: Yes (Hospitalization)
  Sender: FDA-Public Use
  Company Number: US-BAYER-2014-083176

PATIENT
  Age: 26 Year
  Sex: Female
  Weight: 54.42 kg

DRUGS (1)
  1. MIRENA [Suspect]
     Active Substance: LEVONORGESTREL
     Indication: CONTRACEPTION
     Dosage: 20 MCG/24HR, CONT
     Route: 015
     Dates: start: 20110425, end: 20110427

REACTIONS (6)
  - Medical device pain [None]
  - Injury [None]
  - Procedural pain [Not Recovered/Not Resolved]
  - Device issue [None]
  - Post procedural discomfort [Not Recovered/Not Resolved]
  - Uterine perforation [None]

NARRATIVE: CASE EVENT DATE: 20110425
